FAERS Safety Report 4998798-7 (Version None)
Quarter: 2006Q2

REPORT INFORMATION
  Report Type: 
  Country: None (occurrence: None)
  Receive Date: 20060510
  Receipt Date: 20050923
  Transmission Date: 20061013
  Serious: Yes (Death, Hospitalization, Other)
  Sender: FDA-Public Use
  Company Number: US-MERCK-0509USA03837

PATIENT
  Age: 83 Year
  Sex: Female
  Weight: 61 kg

DRUGS (6)
  1. VIOXX [Suspect]
     Indication: ARTHRITIS
     Route: 048
     Dates: start: 19990101, end: 20031001
  2. VIOXX [Suspect]
     Route: 048
     Dates: start: 19990101, end: 20031001
  3. ADALAT [Concomitant]
     Indication: HYPERTENSION
     Route: 065
     Dates: start: 19930101
  4. CLARITIN [Concomitant]
     Indication: HYPERSENSITIVITY
     Route: 065
  5. ASPIRIN [Concomitant]
     Indication: PROPHYLAXIS
     Route: 065
  6. LEVOBUNOLOL HYDROCHLORIDE [Concomitant]
     Indication: GLAUCOMA
     Route: 065

REACTIONS (7)
  - ARTERIOSCLEROSIS CORONARY ARTERY [None]
  - ARTHROPATHY [None]
  - CARDIAC ARREST [None]
  - CAROTID ARTERY DISEASE [None]
  - GRAFT THROMBOSIS [None]
  - HYPERTENSION [None]
  - MYOCARDIAL INFARCTION [None]
